FAERS Safety Report 9371950 (Version 1)
Quarter: 2013Q2

REPORT INFORMATION
  Report Type: Report from Study
  Country: US (occurrence: US)
  Receive Date: 20130627
  Receipt Date: 20130627
  Transmission Date: 20140414
  Serious: Yes (Other)
  Sender: FDA-Public Use
  Company Number: US-MYLANLABS-2012S1011123

PATIENT
  Age: 15 Year
  Sex: Male

DRUGS (10)
  1. CLOZAPINE TABLETS [Suspect]
     Indication: SCHIZOAFFECTIVE DISORDER
     Route: 048
     Dates: start: 20120515, end: 20121101
  2. CLOZAPINE TABLETS [Suspect]
     Indication: ASPERGER^S DISORDER
     Route: 048
     Dates: start: 20120515, end: 20121101
  3. CLOZAPINE TABLETS [Suspect]
     Indication: PSYCHOTIC DISORDER
     Route: 048
     Dates: start: 20120515, end: 20121101
  4. CLOZAPINE TABLETS [Suspect]
     Indication: SCHIZOAFFECTIVE DISORDER
     Route: 048
     Dates: start: 20121104
  5. CLOZAPINE TABLETS [Suspect]
     Indication: ASPERGER^S DISORDER
     Route: 048
     Dates: start: 20121104
  6. CLOZAPINE TABLETS [Suspect]
     Indication: PSYCHOTIC DISORDER
     Route: 048
     Dates: start: 20121104
  7. TRILEPTAL [Concomitant]
  8. GLYCOPYRROLATE [Concomitant]
  9. NAMENDA [Concomitant]
  10. TRAZODONE [Concomitant]

REACTIONS (3)
  - Granulocytopenia [Recovered/Resolved]
  - Leukopenia [Recovered/Resolved]
  - Viral infection [Recovered/Resolved]
